FAERS Safety Report 7923873-4 (Version None)
Quarter: 2011Q4

REPORT INFORMATION
  Report Type: 
  Country: None (occurrence: None)
  Receive Date: 20111117
  Receipt Date: 20110209
  Transmission Date: 20120403
  Serious: No
  Sender: FDA-Public Use
  Company Number: US-AMGEN-USASP2011007784

PATIENT
  Sex: Female

DRUGS (2)
  1. ENBREL [Suspect]
     Indication: RHEUMATOID ARTHRITIS
     Dosage: 50 MG, QWK
     Dates: start: 20061001, end: 20110125
  2. ENBREL [Suspect]
     Indication: SPONDYLITIS

REACTIONS (10)
  - ROSACEA [None]
  - INJECTION SITE HAEMATOMA [None]
  - COUGH [None]
  - FALL [None]
  - IRITIS [None]
  - PAIN IN EXTREMITY [None]
  - OROPHARYNGEAL PAIN [None]
  - INCREASED UPPER AIRWAY SECRETION [None]
  - CONTUSION [None]
  - RHEUMATOID ARTHRITIS [None]
